FAERS Safety Report 14186180 (Version 1)
Quarter: 2017Q4

REPORT INFORMATION
  Report Type: Spontaneous
  Country: MN (occurrence: MN)
  Receive Date: 20171114
  Receipt Date: 20171114
  Transmission Date: 20180321
  Serious: Yes (Other)
  Sender: FDA-Public Use
  Company Number: MN-ROCHE-2021150

PATIENT

DRUGS (1)
  1. BEVACIZUMAB. [Suspect]
     Active Substance: BEVACIZUMAB
     Indication: EYE DISORDER
     Route: 050

REACTIONS (5)
  - Suspected counterfeit product [Unknown]
  - Endophthalmitis [Unknown]
  - Suspected transmission of an infectious agent via product [Unknown]
  - Off label use [Unknown]
  - Intentional product use issue [Unknown]
